FAERS Safety Report 4616133-0 (Version None)
Quarter: 2005Q1

REPORT INFORMATION
  Report Type: 
  Country: None (occurrence: None)
  Receive Date: 20050321
  Receipt Date: 20050308
  Transmission Date: 20050727
  Serious: Yes (Hospitalization)
  Sender: FDA-Public Use
  Company Number: MK200503-0118-1

PATIENT
  Age: 65 Year
  Sex: Female

DRUGS (1)
  1. ANAFRANIL CAP [Suspect]
     Indication: DEPRESSION

REACTIONS (1)
  - INAPPROPRIATE ANTIDIURETIC HORMONE SECRETION [None]
